FAERS Safety Report 21865737 (Version 1)
Quarter: 2023Q1

REPORT INFORMATION
  Report Type: Spontaneous
  Country: US (occurrence: US)
  Receive Date: 20230116
  Receipt Date: 20230116
  Transmission Date: 20230418
  Serious: No
  Sender: FDA-Public Use
  Company Number: US-SA-SAC20230113000150

PATIENT
  Age: 89 Year
  Sex: Female

DRUGS (7)
  1. DUPIXENT [Suspect]
     Active Substance: DUPILUMAB
     Indication: Dermatitis atopic
     Dosage: 300 MG, QOW
     Route: 058
     Dates: start: 20190811
  2. ASPIRIN [Concomitant]
     Active Substance: ASPIRIN
  3. HYDROCHLOROTHIAZIDE [Concomitant]
     Active Substance: HYDROCHLOROTHIAZIDE
  4. PROLIA [Concomitant]
     Active Substance: DENOSUMAB
  5. PREDNISONE [Concomitant]
     Active Substance: PREDNISONE
  6. CLOBETASOL [Concomitant]
     Active Substance: CLOBETASOL
  7. VITAMIN D3 [Concomitant]
     Active Substance: CHOLECALCIFEROL

REACTIONS (2)
  - Knee arthroplasty [Unknown]
  - Post procedural infection [Unknown]
